FAERS Safety Report 22255982 (Version 1)
Quarter: 2023Q2

REPORT INFORMATION
  Report Type: Report from Study
  Country: ES (occurrence: ES)
  Receive Date: 20230426
  Receipt Date: 20230426
  Transmission Date: 20230721
  Serious: Yes (Hospitalization, Other)
  Sender: FDA-Public Use
  Company Number: ES-BAXTER-2014BAX042310

PATIENT
  Age: 9 Year
  Sex: Male
  Weight: 24.6 kg

DRUGS (12)
  1. ADVATE [Suspect]
     Active Substance: ANTIHEMOPHILIC FACTOR, HUMAN RECOMBINANT
     Indication: Factor VIII deficiency
     Dosage: UNK
     Route: 042
     Dates: start: 20120309
  2. ADVATE [Suspect]
     Active Substance: ANTIHEMOPHILIC FACTOR, HUMAN RECOMBINANT
     Indication: Factor VIII deficiency
     Dosage: UNK
     Route: 042
     Dates: start: 20120309
  3. ADVATE [Suspect]
     Active Substance: ANTIHEMOPHILIC FACTOR, HUMAN RECOMBINANT
     Indication: Factor VIII deficiency
     Dosage: UNK
     Route: 042
     Dates: start: 20120309
  4. ADVATE [Suspect]
     Active Substance: ANTIHEMOPHILIC FACTOR, HUMAN RECOMBINANT
     Indication: Prophylaxis
     Dosage: 500IU (INTERNATIONAL UNIT)
     Route: 042
     Dates: start: 20131216, end: 20131216
  5. ADVATE [Suspect]
     Active Substance: ANTIHEMOPHILIC FACTOR, HUMAN RECOMBINANT
     Indication: Prophylaxis
     Dosage: 500IU (INTERNATIONAL UNIT)
     Route: 042
     Dates: start: 20131216, end: 20131216
  6. ADVATE [Suspect]
     Active Substance: ANTIHEMOPHILIC FACTOR, HUMAN RECOMBINANT
     Indication: Prophylaxis
     Dosage: 500IU (INTERNATIONAL UNIT)
     Route: 042
     Dates: start: 20131216, end: 20131216
  7. amoxicline [Concomitant]
     Indication: Mycoplasma infection
     Dosage: 250/5 MG/ML
     Dates: start: 201312, end: 20131228
  8. BATMEN [Concomitant]
     Indication: Dermatitis atopic
     Dosage: .5PERCENTAS NEEDED
     Route: 065
     Dates: start: 200601
  9. Fucidine [Concomitant]
     Indication: Dermatitis atopic
     Dosage: 1X A DAY
     Dates: start: 20121126
  10. ACETAMINOPHEN [Concomitant]
     Active Substance: ACETAMINOPHEN
     Indication: Headache
     Dosage: 250MILLIGRAMAS NEEDED
     Dates: start: 20120309
  11. VENTOLIN [Concomitant]
     Active Substance: ALBUTEROL SULFATE
     Indication: Bronchitis
     Dosage: 200 OR 400 MCG
     Dates: start: 20120308
  12. LACTISONA [Concomitant]
     Indication: Dermatitis atopic
     Dosage: 1X A DAY
     Dates: start: 20121126

REACTIONS (1)
  - Atypical pneumonia [Recovered/Resolved]

NARRATIVE: CASE EVENT DATE: 20131218
